FAERS Safety Report 8556014 (Version 2)
Quarter: 2012Q4

REPORT INFORMATION
  Report Type: 
  Country: US (occurrence: US)
  Receive Date: 20120510
  Receipt Date: 20120828
  Transmission Date: 20130627
  Serious: Yes (Life-Threatening, Hospitalization)
  Sender: FDA-Public Use
  Company Number: US-BAYER-2012-043482

PATIENT
  Age: 26 Year
  Sex: Female

DRUGS (5)
  1. YAZ [Suspect]
     Dosage: UNK
  2. YASMIN [Suspect]
     Indication: CONTRACEPTION
     Dosage: UNK
  3. OCELLA [Suspect]
     Dosage: UNK
  4. DIETARY SUPPLEMENTS [Concomitant]
  5. WEIGHT LOSS PILLS [Concomitant]

REACTIONS (8)
  - Cerebrovascular accident [None]
  - Embolism venous [None]
  - Injury [None]
  - Anxiety [None]
  - Pain [None]
  - General physical health deterioration [None]
  - Anhedonia [None]
  - Emotional distress [None]
